FAERS Safety Report 6940047-4 (Version None)
Quarter: 2010Q3

REPORT INFORMATION
  Report Type: 
  Country: None (occurrence: None)
  Receive Date: 20100825
  Receipt Date: 20100818
  Transmission Date: 20110219
  Serious: Yes (Hospitalization)
  Sender: FDA-Public Use
  Company Number: US-RANBAXY-2010US-37434

PATIENT

DRUGS (4)
  1. PRAMIPEXOLE [Suspect]
     Indication: PARKINSON'S DISEASE
     Dosage: UNK, UNK
     Route: 065
  2. CARBILEV [Suspect]
     Indication: PARKINSON'S DISEASE
     Dosage: UNK
     Route: 065
  3. TRIHEXYPHENIDYL HCL [Suspect]
     Indication: PARKINSON'S DISEASE
     Route: 065
  4. RASAGILINE [Suspect]
     Indication: PARKINSON'S DISEASE
     Dosage: UNK
     Route: 065

REACTIONS (1)
  - CORONARY ARTERY DISSECTION [None]
